FAERS Safety Report 6029379-4 (Version None)
Quarter: 2009Q1

REPORT INFORMATION
  Report Type: 
  Country: None (occurrence: None)
  Receive Date: 20090105
  Receipt Date: 20081225
  Transmission Date: 20090719
  Serious: Yes (Other)
  Sender: FDA-Public Use
  Company Number: 1000003107

PATIENT
  Age: 50 Year
  Sex: Female

DRUGS (4)
  1. FOSFOMYCIN (FOSFOMYCIN TROMETAMOL) (GRANULATE) [Suspect]
     Indication: DYSURIA
     Dosage: (3 GM), ORAL
     Route: 048
  2. CIPRODAR [Suspect]
     Indication: DYSURIA
     Dosage: ORAL
     Route: 048
  3. ASCORBIC ACID [Concomitant]
  4. ROYAL JELLY [Concomitant]

REACTIONS (2)
  - ASTHENIA [None]
  - THROMBOCYTOPENIA [None]
